FAERS Safety Report 4415248-X (Version None)
Quarter: 2004Q3

REPORT INFORMATION
  Report Type: 
  Country: None (occurrence: None)
  Receive Date: 20040804
  Receipt Date: 20040724
  Transmission Date: 20050211
  Serious: Yes (Other)
  Sender: FDA-Public Use
  Company Number: PHEH2004US08039

PATIENT
  Age: 57 Year
  Sex: Male

DRUGS (4)
  1. ZOMETA [Suspect]
     Indication: BONE NEOPLASM MALIGNANT
     Dosage: 4 MG/MONTH
     Route: 042
     Dates: start: 20020801, end: 20040401
  2. ALLOPURINOL [Concomitant]
     Indication: GOUT
     Dosage: UNK, QD
  3. MULTI-VITAMINS [Concomitant]
     Dosage: UNK, QD
  4. AMBIEN [Concomitant]
     Dosage: PRN

REACTIONS (6)
  - BONE DEBRIDEMENT [None]
  - BONE DISORDER [None]
  - DRUG EFFECT DECREASED [None]
  - IMPAIRED HEALING [None]
  - MOUTH ULCERATION [None]
  - WOUND SECRETION [None]
